FAERS Safety Report 11079933 (Version 2)
Quarter: 2015Q2

REPORT INFORMATION
  Report Type: Spontaneous
  Country: GB (occurrence: GB)
  Receive Date: 20150430
  Receipt Date: 20150507
  Transmission Date: 20150821
  Serious: Yes (Hospitalization)
  Sender: FDA-Public Use
  Company Number: GB-PFIZER INC-2015146150

PATIENT
  Age: 76 Year
  Sex: Male

DRUGS (3)
  1. MYCOPHENOLATE MOFETIL. [Suspect]
     Active Substance: MYCOPHENOLATE MOFETIL
     Indication: IMMUNOSUPPRESSION
     Dosage: 500 MG, UNK
     Route: 065
  2. ADVAGRAF [Suspect]
     Active Substance: TACROLIMUS
     Indication: IMMUNOSUPPRESSION
     Dosage: 3 MG, UNK
     Route: 065
  3. PREDNISOLONE/PREDNISOLONE STEAGLATE [Suspect]
     Active Substance: PREDNISOLONE\PREDNISOLONE STEAGLATE
     Indication: IMMUNOSUPPRESSION
     Dosage: 5 MG, UNK
     Route: 065

REACTIONS (1)
  - Malaise [Unknown]
